FAERS Safety Report 6925061-7 (Version None)
Quarter: 2010Q3

REPORT INFORMATION
  Report Type: 
  Country: None (occurrence: None)
  Receive Date: 20100816
  Receipt Date: 20100805
  Transmission Date: 20110219
  Serious: Yes (Other)
  Sender: FDA-Public Use
  Company Number: US-CELGENEUS-163-21880-10061094

PATIENT
  Sex: Female

DRUGS (9)
  1. REVLIMID [Suspect]
     Indication: MYELODYSPLASTIC SYNDROME
     Route: 048
     Dates: start: 20100524, end: 20100605
  2. STEROIDS [Concomitant]
     Indication: POLYMYALGIA RHEUMATICA
     Route: 065
  3. PROCRIT [Concomitant]
     Indication: PRODUCT USED FOR UNKNOWN INDICATION
     Dosage: 40
     Route: 065
     Dates: start: 19970101
  4. CARDIZEM [Concomitant]
     Indication: HYPERTENSION
     Route: 065
     Dates: start: 20080101
  5. PROTONIX [Concomitant]
     Route: 065
     Dates: start: 20040101
  6. DIOVAN [Concomitant]
     Indication: ATRIAL FIBRILLATION
     Route: 065
     Dates: start: 19960101
  7. COUMADIN [Concomitant]
     Indication: ATRIAL FIBRILLATION
     Route: 065
     Dates: start: 19960101
  8. DARVOCET [Concomitant]
     Indication: PRODUCT USED FOR UNKNOWN INDICATION
     Route: 065
     Dates: start: 19960101
  9. XANAX [Concomitant]
     Indication: PRODUCT USED FOR UNKNOWN INDICATION
     Route: 048
     Dates: start: 19960101

REACTIONS (2)
  - FATIGUE [None]
  - POLYMYALGIA RHEUMATICA [None]
